FAERS Safety Report 10841316 (Version 1)
Quarter: 2015Q1

REPORT INFORMATION
  Report Type: Spontaneous
  Country: CZ (occurrence: None)
  Receive Date: 20150218
  Receipt Date: 20150218
  Transmission Date: 20150721
  Serious: Yes (Hospitalization)
  Sender: FDA-Public Use
  Company Number: INT_00695_2015

PATIENT
  Age: 42 Year
  Sex: Female

DRUGS (10)
  1. DOCETAXEL (DOCETAXEL) [Suspect]
     Active Substance: DOCETAXEL
     Indication: BREAST CANCER STAGE III
     Dosage: TOTAL DOSE 167 MG, APPLIED FOR 1 H, 4 CYCLES
     Route: 042
  2. PACLITAXEL (PACLITAXEL) (HQ SPECIALTY) [Suspect]
     Active Substance: PACLITAXEL
     Indication: BREAST CANCER STAGE III
     Dosage: TOTAL DOSE 150 MG, APPLIED FOR 1 HR
  3. RANITIDINE [Concomitant]
     Active Substance: RANITIDINE\RANITIDINE HYDROCHLORIDE
  4. BISULEPIN [Concomitant]
     Active Substance: BISULEPIN
  5. CYCLOPHOSPHAMIDE (CYCLOPHOSPHAMIDE) [Suspect]
     Active Substance: CYCLOPHOSPHAMIDE
     Indication: BREAST CANCER STAGE III
     Dosage: ADMINISTERED EVERY 21 DAYS, 4 CYCLES , INFUSION
  6. ONDANSETRON [Concomitant]
     Active Substance: ONDANSETRON
  7. DEXAMETHASONE. [Concomitant]
     Active Substance: DEXAMETHASONE
  8. TAMOXIFEN [Concomitant]
     Active Substance: TAMOXIFEN
  9. GOSERELIN [Concomitant]
     Active Substance: GOSERELIN
  10. ADRIAMYCIN [Suspect]
     Active Substance: DOXORUBICIN HYDROCHLORIDE
     Indication: BREAST CANCER STAGE III
     Dosage: ADMINISTERED EVERY 21 DAYS, 4 CYCLES , INFUSION

REACTIONS (10)
  - Hallucination [None]
  - Hallucinations, mixed [None]
  - Suicidal ideation [None]
  - Anxiety [None]
  - Psychotic disorder [None]
  - Disturbance in attention [None]
  - Headache [None]
  - Hypoaesthesia [None]
  - Dysphemia [None]
  - Delirium [None]
